FAERS Safety Report 10913059 (Version 1)
Quarter: 2015Q1

REPORT INFORMATION
  Report Type: Spontaneous
  Country: JP (occurrence: None)
  Receive Date: 20150310
  Receipt Date: 20150310
  Transmission Date: 20150721
  Serious: Yes (Hospitalization)
  Sender: FDA-Public Use
  Company Number: AXC-2015-000065

PATIENT
  Age: 53 Year
  Sex: Male
  Weight: 68 kg

DRUGS (2)
  1. URSODEOXYCHOLIC ACID [Suspect]
     Active Substance: URSODIOL
     Indication: BILIARY CIRRHOSIS PRIMARY
     Route: 048
     Dates: start: 20140111, end: 20140117
  2. LIPIDIL (FENOFEIBRATE) [Concomitant]

REACTIONS (8)
  - Rash generalised [None]
  - Rash pruritic [None]
  - Pyrexia [None]
  - Liver disorder [None]
  - Condition aggravated [None]
  - Eosinophil count increased [None]
  - Drug eruption [None]
  - Jaundice [None]

NARRATIVE: CASE EVENT DATE: 20140116
